FAERS Safety Report 17495341 (Version 1)
Quarter: 2020Q1

REPORT INFORMATION
  Report Type: Spontaneous
  Country: US (occurrence: US)
  Receive Date: 20200221
  Receipt Date: 20200221
  Transmission Date: 20200409
  Serious: No
  Sender: FDA-Public Use
  Company Number: None

PATIENT
  Age: 62 Year
  Sex: Male
  Weight: 114.31 kg

DRUGS (1)
  1. ROSUVASTATIN (ROSUVASTATIN CA 20MG TAB) [Suspect]
     Active Substance: ROSUVASTATIN
     Route: 048
     Dates: start: 20191001, end: 20191104

REACTIONS (4)
  - Urine odour abnormal [None]
  - Myalgia [None]
  - Chromaturia [None]
  - Blood creatine phosphokinase increased [None]

NARRATIVE: CASE EVENT DATE: 20191101
